FAERS Safety Report 4378206-X (Version None)
Quarter: 2004Q2

REPORT INFORMATION
  Report Type: 
  Country: None (occurrence: None)
  Receive Date: 20040609
  Receipt Date: 20040602
  Transmission Date: 20050107
  Serious: Yes (Death)
  Sender: FDA-Public Use
  Company Number: US_0405103283

PATIENT
  Age: 41 Year
  Sex: Male

DRUGS (7)
  1. STRATTERA [Suspect]
     Indication: ATTENTION DEFICIT/HYPERACTIVITY DISORDER
     Dosage: 80 MG/1 DAY
     Dates: start: 20030805
  2. ADDERALL 10 [Concomitant]
  3. METHOTREXATE [Concomitant]
  4. CELEBREX [Concomitant]
  5. ULTRAM [Concomitant]
  6. LEVOXYL [Concomitant]
  7. ZOLOFT [Concomitant]

REACTIONS (1)
  - MYOCARDIAL INFARCTION [None]
